FAERS Safety Report 26143802 (Version 1)
Quarter: 2025Q4

REPORT INFORMATION
  Report Type: Report from Study
  Country: CN (occurrence: None)
  Receive Date: 20251211
  Receipt Date: 20251211
  Transmission Date: 20260117
  Serious: Yes (Other)
  Sender: UCB
  Company Number: CN-UCBSA-2025075621

PATIENT

DRUGS (7)
  1. LEVETIRACETAM [Suspect]
     Active Substance: LEVETIRACETAM
     Indication: Seizure prophylaxis
     Dosage: 20 MILLIGRAM/KILOGRAM/DAY ADMINISTERED IN 2 DIVIDED ORAL DOSES, -5-3D
  2. LEVETIRACETAM [Suspect]
     Active Substance: LEVETIRACETAM
     Indication: Off label use
  3. BUSULFAN [Concomitant]
     Active Substance: BUSULFAN
     Indication: Product used for unknown indication
     Dosage: UNK
  4. CYCLOPHOSPHAMIDE [Concomitant]
     Active Substance: CYCLOPHOSPHAMIDE
     Indication: Product used for unknown indication
  5. CYCLOSPORINE [Concomitant]
     Active Substance: CYCLOSPORINE
     Indication: Transplantation complication
     Dosage: UNK
  6. METHOTREXATE [Concomitant]
     Active Substance: METHOTREXATE
     Indication: Transplantation complication
  7. FLUDARABINE [Concomitant]
     Active Substance: FLUDARABINE PHOSPHATE
     Indication: Product used for unknown indication

REACTIONS (13)
  - Myelosuppression [Unknown]
  - Venoocclusive liver disease [Unknown]
  - Renal impairment [Unknown]
  - Cystitis haemorrhagic [Unknown]
  - Hypokalaemia [Unknown]
  - Pneumonia [Unknown]
  - Pyrexia [Unknown]
  - Stomatitis [Unknown]
  - Hypomagnesaemia [Unknown]
  - Hepatic function abnormal [Unknown]
  - Sinusitis [Unknown]
  - Rash [Unknown]
  - Off label use [Unknown]
